FAERS Safety Report 8019547-4 (Version None)
Quarter: 2012Q1

REPORT INFORMATION
  Report Type: 
  Country: None (occurrence: None)
  Receive Date: 20120103
  Receipt Date: 20111227
  Transmission Date: 20120608
  Serious: Yes (Other)
  Sender: FDA-Public Use
  Company Number: FR-JNJFOC-20111002884

PATIENT
  Sex: Female

DRUGS (3)
  1. AMITRIPTYLINE HCL [Concomitant]
  2. TOPIRAMATE [Suspect]
     Route: 048
  3. TOPIRAMATE [Suspect]
     Indication: MIGRAINE
     Route: 048

REACTIONS (5)
  - OPTIC NERVE INJURY [None]
  - ANGLE CLOSURE GLAUCOMA [None]
  - ASTHENIA [None]
  - IRRITABILITY [None]
  - MEMORY IMPAIRMENT [None]
